FAERS Safety Report 5757730-9 (Version None)
Quarter: 2008Q2

REPORT INFORMATION
  Report Type: 
  Country: None (occurrence: None)
  Receive Date: 20080529
  Receipt Date: 20080521
  Transmission Date: 20081010
  Serious: Yes (Other)
  Sender: FDA-Public Use
  Company Number: 2008SP009829

PATIENT

DRUGS (1)
  1. NOXAFIL [Suspect]
     Indication: PROPHYLAXIS
     Dosage: 600 MG;QD

REACTIONS (2)
  - ASPERGILLOSIS [None]
  - DRUG INEFFECTIVE [None]
